FAERS Safety Report 16450986 (Version 1)
Quarter: 2019Q2

REPORT INFORMATION
  Report Type: Spontaneous
  Country: BG (occurrence: BG)
  Receive Date: 20190619
  Receipt Date: 20190619
  Transmission Date: 20190711
  Serious: Yes (Death)
  Sender: FDA-Public Use
  Company Number: BG-ROCHE-2337205

PATIENT
  Age: 82 Year
  Sex: Female

DRUGS (6)
  1. ACTILYSE [Suspect]
     Active Substance: ALTEPLASE
     Indication: CEREBRAL INFARCTION
     Dosage: 7ML+65 ML
     Route: 042
     Dates: start: 20180315
  2. SODIUM CHLORIDE 0.9% [Concomitant]
     Active Substance: SODIUM CHLORIDE
  3. QUAMATEL [Concomitant]
     Active Substance: FAMOTIDINE
  4. RINGERS SOLUTION [Concomitant]
     Active Substance: CALCIUM CHLORIDE\POTASSIUM CHLORIDE\SODIUM CHLORIDE
  5. SOMAZINA [CITICOLINE] [Concomitant]
  6. VICETIN [Concomitant]

REACTIONS (7)
  - Speech disorder [Fatal]
  - Pyrexia [Fatal]
  - Hypophagia [Fatal]
  - Somnolence [Fatal]
  - Cardiac failure acute [Fatal]
  - Coma [Fatal]
  - Acute respiratory failure [Fatal]

NARRATIVE: CASE EVENT DATE: 20180317
